FAERS Safety Report 18061015 (Version 2)
Quarter: 2020Q3

REPORT INFORMATION
  Report Type: Spontaneous
  Country: US (occurrence: US)
  Receive Date: 20200723
  Receipt Date: 20200731
  Transmission Date: 20201103
  Serious: No
  Sender: FDA-Public Use
  Company Number: US-SUNOVION-2020SUN002085

PATIENT
  Sex: Female

DRUGS (3)
  1. LATUDA [Suspect]
     Active Substance: LURASIDONE HYDROCHLORIDE
     Indication: ANXIETY
     Dosage: 20 MG (HALF OF 40MG), QD
     Route: 048
     Dates: start: 20200715
  2. LATUDA [Suspect]
     Active Substance: LURASIDONE HYDROCHLORIDE
     Indication: DEPRESSION
     Dosage: 40 MG, QD
     Route: 048
     Dates: start: 20200708, end: 20200714
  3. LATUDA [Suspect]
     Active Substance: LURASIDONE HYDROCHLORIDE
     Indication: BIPOLAR DISORDER
     Dosage: 20 MG (HALF OF 40MG), SINGLE (ONE DOSE)
     Route: 048
     Dates: start: 20200707, end: 20200708

REACTIONS (12)
  - Cognitive disorder [Unknown]
  - Panic attack [Unknown]
  - Confusional state [Unknown]
  - Crying [Unknown]
  - Speech disorder [Unknown]
  - Anxiety [Unknown]
  - Drug ineffective [Unknown]
  - Disturbance in attention [Unknown]
  - Depression [Unknown]
  - Condition aggravated [Unknown]
  - Wrong technique in product usage process [Unknown]
  - Off label use [Unknown]
